FAERS Safety Report 8663412 (Version 2)
Quarter: 2012Q4

REPORT INFORMATION
  Report Type: Report from Study
  Country: JP (occurrence: JP)
  Receive Date: 20120713
  Receipt Date: 20121120
  Transmission Date: 20130627
  Serious: Yes (Hospitalization)
  Sender: FDA-Public Use
  Company Number: JP-009507513-1207JPN001491

PATIENT
  Age: 67 Year
  Sex: Female
  Weight: 61 kg

DRUGS (6)
  1. PEGINTRON [Suspect]
     Indication: HEPATITIS C
     Dosage: 1.5 Microgram per kilogram, qw
     Route: 058
     Dates: start: 20120509
  2. REBETOL [Suspect]
     Indication: HEPATITIS C
     Dosage: 600 mg, qd
     Route: 048
     Dates: start: 20120509, end: 20120601
  3. REBETOL [Suspect]
     Dosage: 400 mg, qd
     Route: 048
     Dates: start: 20120602
  4. TELAVIC [Suspect]
     Indication: HEPATITIS C
     Dosage: 2250 mg, qd
     Route: 048
     Dates: start: 20120509, end: 20120517
  5. TELAVIC [Suspect]
     Dosage: 1500 mg, qd
     Route: 048
     Dates: start: 20120518, end: 20120607
  6. MICARDIS [Concomitant]
     Indication: HYPERTENSION
     Dosage: 40 mg, qd Oral agent of dosage form not clear
     Route: 048

REACTIONS (12)
  - Pyelonephritis [Recovered/Resolved]
  - Decreased appetite [Recovered/Resolved]
  - Vomiting [Recovered/Resolved]
  - Nausea [Recovered/Resolved]
  - Blood creatinine increased [None]
  - Blood uric acid increased [None]
  - Depressive symptom [None]
  - Haemoglobin decreased [None]
  - White blood cell count decreased [None]
  - Platelet count decreased [None]
  - Neutrophil count decreased [None]
  - Infection susceptibility increased [None]
